FAERS Safety Report 16825731 (Version 1)
Quarter: 2019Q3

REPORT INFORMATION
  Report Type: Spontaneous
  Country: GB (occurrence: GB)
  Receive Date: 20190919
  Receipt Date: 20190919
  Transmission Date: 20191005
  Serious: Yes (Other)
  Sender: FDA-Public Use
  Company Number: GB-TEVA-2019-GB-1109117

PATIENT
  Age: 80 Year
  Sex: Female
  Weight: 87 kg

DRUGS (20)
  1. AMLODIPINE [Concomitant]
     Active Substance: AMLODIPINE BESYLATE
     Dosage: 1 DOSAGE FORM, 1 DAY
     Dates: start: 20190503
  2. CLARITHROMYCIN. [Suspect]
     Active Substance: CLARITHROMYCIN
     Dosage: 1 DF PER 12 HOURS
     Dates: start: 20190702, end: 20190709
  3. CODEINE PHOSPHATE [Concomitant]
     Active Substance: CODEINE PHOSPHATE
     Dosage: TAKE ONE-TWO 4 TIMES/DAY
     Dates: start: 20190418, end: 20190509
  4. FLUCLOXACILLIN [Concomitant]
     Active Substance: FLUCLOXACILLIN
     Dosage: 4 DOSAGE FORM, 1 DAY
     Dates: start: 20190507, end: 20190517
  5. FUROSEMIDE. [Concomitant]
     Active Substance: FUROSEMIDE
     Dosage: EACH MORNING; 1 DOSAGE FORM, 1 DAY
     Dates: start: 20190320
  6. ISOSORBIDE MONONITRATE. [Concomitant]
     Active Substance: ISOSORBIDE MONONITRATE
     Dosage: MORNING + LUNCHTIME; 2DOSAGE FORM, 1 DAY
     Dates: start: 20190320
  7. MEPTAZINOL [Concomitant]
     Active Substance: MEPTAZINOL HYDROCHLORIDE
     Dosage: 3 DOSAGE FORM, 1 DAY
     Dates: start: 20190503, end: 20190627
  8. BISOPROLOL [Concomitant]
     Active Substance: BISOPROLOL
     Dosage: IN THE MORNING; 1 DOSAGE FORM, 1 DAY
     Dates: start: 20190320
  9. SALBUTAMOL [Concomitant]
     Active Substance: ALBUTEROL
     Dosage: TWO DOSES UP TO FOUR TIMES A DAY; 2DOSAGE FORMS
     Route: 055
     Dates: start: 20190320
  10. PARACETAMOL [Concomitant]
     Active Substance: ACETAMINOPHEN
     Dosage: FOUR TIMES DAILY; 2DOSAGE FORM
     Dates: start: 20190320, end: 20190627
  11. RAMIPRIL. [Concomitant]
     Active Substance: RAMIPRIL
     Dosage: 1 DOSAGE FORM, 1 DAY
     Dates: start: 20190320, end: 20190503
  12. GLYCERYL TRINITRATE [Concomitant]
     Active Substance: NITROGLYCERIN
     Dosage: SPRAY 2 DOSES UNDER TONGUE AS NEEDED FOR CHEST ...; 2DOSAGE FORMS
     Route: 060
     Dates: start: 20190320
  13. ATORVASTATIN [Concomitant]
     Active Substance: ATORVASTATIN
     Indication: HYPERCHOLESTEROLAEMIA
     Dosage: AT NIGHT; 1DOSAGE FORM, 1 DAY
     Dates: start: 20190320
  14. GABAPENTIN. [Concomitant]
     Active Substance: GABAPENTIN
     Dosage: 9 DOSAGE FORM, 1 DAY
     Dates: start: 20190320
  15. ZEROBASE [Concomitant]
     Active Substance: MINERAL OIL\PARAFFIN
     Dosage: APPLY AS DIRECTED. THIS IS A PARAFFIN-BASED PRO...
     Dates: start: 20190702
  16. CLARITHROMYCIN. [Suspect]
     Active Substance: CLARITHROMYCIN
     Dates: start: 20190712
  17. RANITIDINE. [Concomitant]
     Active Substance: RANITIDINE
     Dosage: 2 DOSAGE FORM, 1 DAY
     Dates: start: 20190320
  18. CLENIL MODULITE [Concomitant]
     Active Substance: BECLOMETHASONE DIPROPIONATE
     Dosage: 4 DOSAGE FORM, 1 DAY
     Route: 055
     Dates: start: 20190320, end: 20190503
  19. CLOPIDOGREL [Concomitant]
     Active Substance: CLOPIDOGREL BISULFATE
     Dosage: 1 DOSAGE FORM, 1 DAY
     Dates: start: 20190320
  20. SPIRIVA [Concomitant]
     Active Substance: TIOTROPIUM BROMIDE MONOHYDRATE
     Dosage: PUFFS; 2 DOSAGE FORM, 1 DAY
     Dates: start: 20190503, end: 20190627

REACTIONS (3)
  - Rash [Not Recovered/Not Resolved]
  - Pharyngeal swelling [Recovered/Resolved]
  - Swollen tongue [Unknown]

NARRATIVE: CASE EVENT DATE: 20190712
